FAERS Safety Report 9303228 (Version 1)
Quarter: 2013Q2

REPORT INFORMATION
  Report Type: Spontaneous
  Country: CN (occurrence: CN)
  Receive Date: 20130522
  Receipt Date: 20130522
  Transmission Date: 20140414
  Serious: Yes (Hospitalization)
  Sender: FDA-Public Use
  Company Number: CN-ABBOTT-13X-035-1092445-00

PATIENT
  Age: 54 Year
  Sex: Female

DRUGS (2)
  1. DEPAKINE CHRONO [Suspect]
     Indication: EPILEPSY
     Dosage: EXTENDED-RELEASE TABLET, 500 MILLIGRAM(S); EVERY 12 HOURS
     Route: 048
     Dates: start: 20120614, end: 20120616
  2. METHYLPREDNISOLONE SODIUM SUCCINATE [Concomitant]
     Indication: PRODUCT USED FOR UNKNOWN INDICATION
     Dates: start: 20120612, end: 20120613

REACTIONS (4)
  - Melaena [Unknown]
  - Thrombocytopenia [Recovering/Resolving]
  - Mania [Recovered/Resolved]
  - Conversion disorder [Recovered/Resolved]
